FAERS Safety Report 15979677 (Version 3)
Quarter: 2019Q3

REPORT INFORMATION
  Report Type: Spontaneous
  Country: US (occurrence: US)
  Receive Date: 20190219
  Receipt Date: 20190821
  Transmission Date: 20191004
  Serious: No
  Sender: FDA-Public Use
  Company Number: US-PFIZER INC-2019071125

PATIENT
  Age: 76 Year
  Sex: Male

DRUGS (1)
  1. ACCUPRO [Suspect]
     Active Substance: QUINAPRIL HYDROCHLORIDE
     Dosage: 40 MG, DAILY

REACTIONS (2)
  - Malaise [Recovered/Resolved]
  - Suspected counterfeit product [Unknown]
